FAERS Safety Report 7790146-2 (Version None)
Quarter: 2011Q3

REPORT INFORMATION
  Report Type: 
  Country: None (occurrence: None)
  Receive Date: 20110930
  Receipt Date: 20100902
  Transmission Date: 20111222
  Serious: No
  Sender: FDA-Public Use
  Company Number: US-ASTRAZENECA-2010SE41432

PATIENT
  Age: 53 Year
  Sex: Female
  Weight: 63.5 kg

DRUGS (3)
  1. ARIMIDEX [Suspect]
     Indication: BREAST CANCER
     Route: 048
     Dates: start: 20070101, end: 20100101
  2. ARIMIDEX [Suspect]
     Route: 048
     Dates: start: 20100101
  3. ANASTROZOLE [Suspect]
     Indication: BREAST CANCER
     Route: 048
     Dates: start: 20100827, end: 20100101

REACTIONS (11)
  - HYPOAESTHESIA [None]
  - HOT FLUSH [None]
  - ARTHRALGIA [None]
  - SOMNOLENCE [None]
  - DYSPNOEA [None]
  - CHILLS [None]
  - VISION BLURRED [None]
  - EROSIVE OESOPHAGITIS [None]
  - PAIN IN EXTREMITY [None]
  - NAUSEA [None]
  - FATIGUE [None]
